FAERS Safety Report 5236664-2 (Version None)
Quarter: 2007Q1

REPORT INFORMATION
  Report Type: 
  Country: None (occurrence: None)
  Receive Date: 20070208
  Receipt Date: 20070201
  Transmission Date: 20070707
  Serious: Yes (Death)
  Sender: FDA-Public Use
  Company Number: 2007-00480

PATIENT
  Age: 24 Year

DRUGS (4)
  1. DIPHENHYDRAMINE HCL [Suspect]
  2. ACETAMINOPHEN- PROPOXYPHENE HCL TAB [Suspect]
  3. ACETAMINOPHEN [Suspect]
  4. COCAINE (COCAINE) [Suspect]

REACTIONS (1)
  - DEATH [None]
